FAERS Safety Report 13029159 (Version 2)
Quarter: 2017Q1

REPORT INFORMATION
  Report Type: Spontaneous
  Country: IT (occurrence: IT)
  Receive Date: 20161215
  Receipt Date: 20170123
  Transmission Date: 20170428
  Serious: Yes (Disabling)
  Sender: FDA-Public Use
  Company Number: IT-ROCHE-1867896

PATIENT
  Age: 64 Year
  Sex: Female

DRUGS (1)
  1. BEVACIZUMAB [Suspect]
     Active Substance: BEVACIZUMAB
     Indication: OVARIAN CANCER
     Dosage: FOR 9 MONTHS
     Route: 042
     Dates: start: 20160301

REACTIONS (2)
  - Tooth avulsion [Unknown]
  - Tooth disorder [Unknown]

NARRATIVE: CASE EVENT DATE: 20161212
